FAERS Safety Report 10905460 (Version 2)
Quarter: 2015Q2

REPORT INFORMATION
  Report Type: Spontaneous
  Country: US (occurrence: US)
  Receive Date: 20150311
  Receipt Date: 20150508
  Transmission Date: 20150821
  Serious: No
  Sender: FDA-Public Use
  Company Number: US-PFIZER INC-2014283180

PATIENT
  Age: 68 Year
  Sex: Female

DRUGS (5)
  1. ZOMETA [Concomitant]
     Active Substance: ZOLEDRONIC ACID
     Dosage: UNK
  2. WARFARIN SODIUM. [Concomitant]
     Active Substance: WARFARIN SODIUM
     Dosage: UNK
  3. IMODIUM A-D [Concomitant]
     Active Substance: LOPERAMIDE HYDROCHLORIDE
     Dosage: UNK
  4. XALKORI [Suspect]
     Active Substance: CRIZOTINIB
     Dosage: UNK
  5. PEPCID AC [Concomitant]
     Active Substance: FAMOTIDINE
     Dosage: UNK

REACTIONS (3)
  - Diarrhoea [Unknown]
  - Nausea [Unknown]
  - Vomiting [Unknown]
